FAERS Safety Report 4324642-7 (Version None)
Quarter: 2004Q1

REPORT INFORMATION
  Report Type: 
  Country: None (occurrence: None)
  Receive Date: 20040322
  Receipt Date: 20040310
  Transmission Date: 20041129
  Serious: Yes (Hospitalization)
  Sender: FDA-Public Use
  Company Number: GB-JNJFOC-20031001783

PATIENT
  Age: 65 Year
  Sex: Female
  Weight: 61 kg

DRUGS (13)
  1. REMICADE [Suspect]
     Indication: RHEUMATOID ARTHRITIS
     Dosage: 170 MG, INTRAVENOUS
     Route: 042
     Dates: start: 20021205, end: 20030717
  2. METHOTREXATE [Concomitant]
  3. FOLIC ACID [Concomitant]
  4. PREDNISOLONE [Concomitant]
  5. FELODIPINE [Concomitant]
  6. CLOPIDOGREL (CLOPIDOGREL) [Concomitant]
  7. CALCIUM CARBONATE (CALCIUM CARBONATE) TABLETS [Concomitant]
  8. PRIMIDONE [Concomitant]
  9. DIHYDROCODEINE (DIHYDROCODEINE) TABLETS [Concomitant]
  10. RISEDRONATE SODIUM (RISEDRONATE SODIUM) [Concomitant]
  11. SULFASALAZINE [Concomitant]
  12. HYDROXYCHLOROQUINE SULFATE [Concomitant]
  13. MELOXICAM (MELOXICAM) [Concomitant]

REACTIONS (2)
  - CHOLELITHIASIS [None]
  - PANCREATITIS [None]
